FAERS Safety Report 10607413 (Version 1)
Quarter: 2014Q4

REPORT INFORMATION
  Report Type: Spontaneous
  Country: US (occurrence: None)
  Receive Date: 20141124
  Receipt Date: 20141124
  Transmission Date: 20150529
  Serious: Yes (Hospitalization)
  Sender: FDA-Public Use
  Company Number: None

PATIENT
  Age: 60 Year
  Sex: Male
  Weight: 118 kg

DRUGS (12)
  1. OMEPRAZOLE. [Suspect]
     Active Substance: OMEPRAZOLE
     Indication: GASTROOESOPHAGEAL REFLUX DISEASE
     Dosage: CHRONIC
     Route: 048
  2. COLCHICINE. [Concomitant]
     Active Substance: COLCHICINE
  3. LISINOPRIL. [Concomitant]
     Active Substance: LISINOPRIL
  4. ALLOPURINOL. [Concomitant]
     Active Substance: ALLOPURINOL
  5. SIMVASTATIN. [Concomitant]
     Active Substance: SIMVASTATIN
  6. MAG OX [Concomitant]
     Active Substance: MAGNESIUM OXIDE
  7. PRATROPIUM [Concomitant]
  8. MECLIZINE [Concomitant]
     Active Substance: MECLIZINE\MECLIZINE HYDROCHLORIDE
  9. ALBUTEROL. [Concomitant]
     Active Substance: ALBUTEROL
  10. SIMETHECONE [Concomitant]
  11. AMLODIPINE [Concomitant]
     Active Substance: AMLODIPINE BESYLATE
  12. APAP [Concomitant]
     Active Substance: ACETAMINOPHEN

REACTIONS (1)
  - Hypomagnesaemia [None]

NARRATIVE: CASE EVENT DATE: 20140529
